FAERS Safety Report 8227038-0 (Version None)
Quarter: 2012Q1

REPORT INFORMATION
  Report Type: 
  Country: None (occurrence: None)
  Receive Date: 20120322
  Receipt Date: 20120319
  Transmission Date: 20120608
  Serious: No
  Sender: FDA-Public Use
  Company Number: US-PFIZER INC-2012071308

PATIENT
  Age: 69 Year
  Sex: Female

DRUGS (5)
  1. DIOVAN [Suspect]
     Dosage: UNK, AS NEEDED
     Route: 048
  2. IBUPROFEN (ADVIL) [Concomitant]
     Indication: HEADACHE
     Dosage: UNKN, DAILY
  3. ADVIL PM [Suspect]
     Indication: SLEEP APNOEA SYNDROME
     Dosage: UNK, DAILY
     Dates: start: 20120315, end: 20120318
  4. CRESTOR [Concomitant]
     Indication: BLOOD CHOLESTEROL INCREASED
     Dosage: 5 MG, ALTERNATE DAY
     Route: 048
  5. DIOVAN [Suspect]
     Indication: HYPERTENSION
     Dosage: 160 MG DAILY
     Route: 048

REACTIONS (5)
  - NASAL CONGESTION [None]
  - DRUG ADMINISTRATION ERROR [None]
  - DYSPNOEA [None]
  - RESPIRATORY DISORDER [None]
  - CHEST DISCOMFORT [None]
